FAERS Safety Report 24424387 (Version 1)
Quarter: 2024Q4

REPORT INFORMATION
  Report Type: Spontaneous
  Country: FR (occurrence: FR)
  Receive Date: 20241010
  Receipt Date: 20241010
  Transmission Date: 20250115
  Serious: Yes (Death, Other)
  Sender: SANDOZ
  Company Number: FR-NOVPHSZ-PHHY2017FR121019

PATIENT
  Age: 51 Year
  Sex: Male

DRUGS (9)
  1. THYMOCYTE IMMUNE GLOBULIN NOS [Suspect]
     Active Substance: THYMOCYTE IMMUNE GLOBULIN NOS
     Indication: Immunosuppressant drug therapy
     Dosage: UNK
     Route: 065
  2. CYCLOSPORINE [Suspect]
     Active Substance: CYCLOSPORINE
     Indication: Immunosuppressant drug therapy
     Dosage: UNK
     Route: 065
  3. CYCLOSPORINE [Suspect]
     Active Substance: CYCLOSPORINE
     Indication: Renal transplant
     Dosage: UNK
     Route: 065
  4. IMURAN [Suspect]
     Active Substance: AZATHIOPRINE
     Indication: Renal transplant
     Dosage: UNK
     Route: 065
  5. IMURAN [Suspect]
     Active Substance: AZATHIOPRINE
     Indication: Immunosuppressant drug therapy
  6. MELPHALAN [Suspect]
     Active Substance: MELPHALAN
     Indication: Plasma cell myeloma
     Route: 065
  7. PREDNISONE [Suspect]
     Active Substance: PREDNISONE
     Indication: Renal transplant
     Dosage: UNK
     Route: 065
  8. PREDNISONE [Suspect]
     Active Substance: PREDNISONE
     Indication: Plasma cell myeloma
     Route: 065
  9. PREDNISONE [Suspect]
     Active Substance: PREDNISONE
     Indication: Immunosuppression

REACTIONS (3)
  - Aspergillus infection [Fatal]
  - Therapeutic response decreased [Unknown]
  - Plasma cell myeloma [Recovering/Resolving]

NARRATIVE: CASE EVENT DATE: 19910101
